FAERS Safety Report 8222740-9 (Version None)
Quarter: 2012Q1

REPORT INFORMATION
  Report Type: 
  Country: None (occurrence: None)
  Receive Date: 20120320
  Receipt Date: 20120312
  Transmission Date: 20120608
  Serious: Yes (Other)
  Sender: FDA-Public Use
  Company Number: US-ASTRAZENECA-2011SE32220

PATIENT
  Age: 54 Year
  Sex: Female
  Weight: 80.7 kg

DRUGS (6)
  1. NEXIUM [Suspect]
     Indication: GASTROOESOPHAGEAL REFLUX DISEASE
     Route: 048
     Dates: start: 20090101
  2. PREVACID [Concomitant]
     Indication: GASTROOESOPHAGEAL REFLUX DISEASE
  3. PEPCID [Concomitant]
  4. PRILOSEC [Concomitant]
     Indication: DYSPEPSIA
  5. PROTONIX [Concomitant]
     Indication: GASTROOESOPHAGEAL REFLUX DISEASE
  6. ALKA-SELTZER [Concomitant]

REACTIONS (3)
  - BONE DISORDER [None]
  - OSTEOPOROSIS [None]
  - FOOT FRACTURE [None]
